FAERS Safety Report 22762701 (Version 5)
Quarter: 2023Q4

REPORT INFORMATION
  Report Type: Report from Study
  Country: HU (occurrence: HU)
  Receive Date: 20230728
  Receipt Date: 20231109
  Transmission Date: 20240110
  Serious: Yes (Other)
  Sender: FDA-Public Use
  Company Number: HU-002147023-NVSC2023HU064224

PATIENT
  Age: 49 Year
  Sex: Female

DRUGS (6)
  1. PANTOPRAZOLE [Suspect]
     Active Substance: PANTOPRAZOLE
     Dosage: 40 MILLIGRAM, QD
     Route: 065
     Dates: start: 20230216, end: 20230308
  2. KISQALI [Suspect]
     Active Substance: RIBOCICLIB
     Indication: Metastases to bone
     Dosage: 600 MILLIGRAM, QD
     Route: 048
  3. KISQALI [Suspect]
     Active Substance: RIBOCICLIB
     Indication: Breast neoplasm
     Dosage: 600 MILLIGRAM, QD
     Route: 048
     Dates: start: 20230119
  4. KISQALI [Suspect]
     Active Substance: RIBOCICLIB
     Dosage: 3 DOSAGE FORM, QD
     Route: 065
     Dates: start: 20230216, end: 20230308
  5. KISQALI [Suspect]
     Active Substance: RIBOCICLIB
     Dosage: 2 DOSAGE FORM, QD
     Route: 065
     Dates: start: 20230315
  6. LETROZOLE [Suspect]
     Active Substance: LETROZOLE
     Dosage: 2.5 MILLIGRAM, QD
     Route: 065

REACTIONS (5)
  - Leukopenia [Unknown]
  - Electrocardiogram QT prolonged [Unknown]
  - Hepatic enzyme increased [Unknown]
  - Hypergastrinaemia [Unknown]
  - Liver function test increased [Unknown]

NARRATIVE: CASE EVENT DATE: 20230314
